FAERS Safety Report 5098880-2 (Version None)
Quarter: 2006Q3

REPORT INFORMATION
  Report Type: 
  Country: None (occurrence: None)
  Receive Date: 20060905
  Receipt Date: 20060822
  Transmission Date: 20061208
  Serious: Yes (Other)
  Sender: FDA-Public Use
  Company Number: 2006-02201

PATIENT
  Age: 55 Year
  Sex: Female
  Weight: 88 kg

DRUGS (11)
  1. VELCADE [Suspect]
     Indication: MULTIPLE MYELOMA
     Dosage: 1.30 MG/M2, UNK, INTRAVENOUS
     Route: 042
     Dates: start: 20060815, end: 20060818
  2. AREDIA [Concomitant]
  3. DIOVAN [Concomitant]
  4. COUMADIN [Concomitant]
  5. DURAGESIC-100 [Concomitant]
  6. NEURONTIN [Concomitant]
  7. RELAFEN [Concomitant]
  8. ZOLOFT [Concomitant]
  9. XANAX [Concomitant]
  10. PROVIGIL [Concomitant]
  11. PRILOSEC [Concomitant]

REACTIONS (7)
  - CHEST PAIN [None]
  - DYSPHONIA [None]
  - DYSPNOEA [None]
  - INFECTION [None]
  - MUSCLE STRAIN [None]
  - PYREXIA [None]
  - SINUS TACHYCARDIA [None]
